FAERS Safety Report 9958190 (Version 1)
Quarter: 2014Q1

REPORT INFORMATION
  Report Type: Spontaneous
  Country: US (occurrence: US)
  Receive Date: 20140304
  Receipt Date: 20140304
  Transmission Date: 20141002
  Serious: No
  Sender: FDA-Public Use
  Company Number: US-ABBVIE-13P-163-1095153-00

PATIENT
  Age: 53 Year
  Sex: Female
  Weight: 98.97 kg

DRUGS (9)
  1. HUMIRA [Suspect]
     Indication: CROHN^S DISEASE
  2. HUMIRA [Suspect]
  3. HUMIRA [Suspect]
  4. WELLBUTRIN [Concomitant]
     Indication: STRESS
  5. FOLIC ACID [Concomitant]
     Indication: VITAMIN SUPPLEMENTATION
  6. PRILOSEC [Concomitant]
     Indication: DYSPEPSIA
  7. ALIGN [Concomitant]
     Indication: CROHN^S DISEASE
  8. VITAMIN B12 [Concomitant]
     Indication: VITAMIN SUPPLEMENTATION
     Route: 060
  9. LISINOPRIL [Concomitant]
     Indication: HYPERTENSION

REACTIONS (3)
  - Drug dose omission [Not Recovered/Not Resolved]
  - Device malfunction [Not Recovered/Not Resolved]
  - Crohn^s disease [Not Recovered/Not Resolved]
